FAERS Safety Report 14689188 (Version 1)
Quarter: 2018Q1

REPORT INFORMATION
  Report Type: Spontaneous
  Country: JP (occurrence: JP)
  Receive Date: 20180328
  Receipt Date: 20180328
  Transmission Date: 20180509
  Serious: Yes (Hospitalization)
  Sender: FDA-Public Use
  Company Number: JP-MYLANLABS-2018M1018375

PATIENT
  Age: 68 Year
  Sex: Male

DRUGS (2)
  1. LITHIUM. [Suspect]
     Active Substance: LITHIUM
     Indication: SCHIZOPHRENIA
     Dosage: 600 MG/DAY
     Route: 065
  2. RISPERIDONE. [Suspect]
     Active Substance: RISPERIDONE
     Indication: PSYCHOTHERAPY
     Dosage: THE INITIAL DOSE WAS REDUCED TO HALF AND EVENTUALLY DISCONTINUED.
     Route: 065

REACTIONS (3)
  - Myxoedema coma [Recovered/Resolved]
  - Extrapyramidal disorder [Unknown]
  - Hypothyroidism [Recovered/Resolved]
